FAERS Safety Report 17854825 (Version 2)
Quarter: 2020Q3

REPORT INFORMATION
  Report Type: Spontaneous
  Country: US (occurrence: US)
  Receive Date: 20200603
  Receipt Date: 20200907
  Transmission Date: 20201103
  Serious: No
  Sender: FDA-Public Use
  Company Number: US-PFIZER INC-2020032748

PATIENT
  Age: 79 Year
  Sex: Female
  Weight: 56.7 kg

DRUGS (1)
  1. LYRICA [Suspect]
     Active Substance: PREGABALIN
     Indication: NEUROPATHY PERIPHERAL
     Dosage: 75 MG, 2X/DAY
     Route: 048

REACTIONS (4)
  - Thinking abnormal [Unknown]
  - Nausea [Unknown]
  - Pruritus [Unknown]
  - Withdrawal syndrome [Unknown]
